FAERS Safety Report 18306965 (Version 3)
Quarter: 2020Q4

REPORT INFORMATION
  Report Type: Spontaneous
  Country: US (occurrence: US)
  Receive Date: 20200924
  Receipt Date: 20201012
  Transmission Date: 20210113
  Serious: No
  Sender: FDA-Public Use
  Company Number: US-GW PHARMA-202009USGW03171

PATIENT

DRUGS (44)
  1. FYCOMPA [Concomitant]
     Active Substance: PERAMPANEL
     Dosage: 0.2 MG/KG/DAY, 9 MILLIGRAM, QHS
     Route: 065
     Dates: end: 2020
  2. TOPAMAX [Concomitant]
     Active Substance: TOPIRAMATE
     Dosage: TAPERING OFF 25 MILLIGRAM, BID, PER WEEK
  3. PULMICORT TURBUHALER [Concomitant]
     Active Substance: BUDESONIDE
     Indication: PRODUCT USED FOR UNKNOWN INDICATION
     Dosage: 0.5 MILLIGRAM, BID, INHAL SUSPENSION
  4. EPIDIOLEX [Suspect]
     Active Substance: CANNABIDIOL
     Dosage: 10.2 MG/KG/DAY, 230 MILLIGRAM, BID
     Route: 048
     Dates: start: 202008, end: 2020
  5. ONFI [Concomitant]
     Active Substance: CLOBAZAM
     Dosage: 25 MILLIGRAM, BID
     Route: 065
     Dates: start: 20200917
  6. BENADRYL [Concomitant]
     Active Substance: DIPHENHYDRAMINE HYDROCHLORIDE
     Indication: PRODUCT USED FOR UNKNOWN INDICATION
     Dosage: 50 MILLIGRAM, Q6H
     Route: 048
  7. MYCOSTATIN [Concomitant]
     Active Substance: NYSTATIN
     Indication: PRODUCT USED FOR UNKNOWN INDICATION
     Dosage: APPLY TO AFFECTED AREA TWICE DAILY AS NEEDED, 100000 UNIT/GM
     Route: 061
  8. SALINE [SODIUM CHLORIDE] [Concomitant]
     Active Substance: SODIUM CHLORIDE
     Indication: PRODUCT USED FOR UNKNOWN INDICATION
     Dosage: 3 MILLILITER, TID AS NEEDED AS DIRECTED
  9. FYCOMPA [Concomitant]
     Active Substance: PERAMPANEL
     Dosage: 2 TABLETS, QD (AT NIGHT), STRENGTH: 4 MG
     Route: 048
  10. CLONAZEPAM. [Concomitant]
     Active Substance: CLONAZEPAM
     Indication: PRODUCT USED FOR UNKNOWN INDICATION
     Dosage: 0.25 MILLIGRAM, BID
     Route: 065
  11. TYLENOL [Concomitant]
     Active Substance: ACETAMINOPHEN
     Indication: PRODUCT USED FOR UNKNOWN INDICATION
     Dosage: 1000 MILLIGRAM, Q4H AS NEEDED
     Route: 048
  12. NASONEX [Concomitant]
     Active Substance: MOMETASONE FUROATE
     Indication: PRODUCT USED FOR UNKNOWN INDICATION
     Dosage: 2 ACTUATION, Q12H
     Route: 045
  13. EPIDIOLEX [Suspect]
     Active Substance: CANNABIDIOL
     Indication: PARTIAL SEIZURES
     Dosage: UNK
     Route: 048
     Dates: start: 20200728, end: 2020
  14. ONFI [Concomitant]
     Active Substance: CLOBAZAM
     Indication: PRODUCT USED FOR UNKNOWN INDICATION
     Dosage: 2 MG/KG/DAY, 30 MILLIGRAM, BID
     Route: 065
  15. ONFI [Concomitant]
     Active Substance: CLOBAZAM
     Dosage: 15 MILLIGRAM, TID (TAPER ON WEEK 2)
     Route: 065
  16. FYCOMPA [Concomitant]
     Active Substance: PERAMPANEL
     Dosage: 7 MILLIGRAM, QD (QHS)
     Route: 048
     Dates: start: 2020
  17. TOPAMAX [Concomitant]
     Active Substance: TOPIRAMATE
     Dosage: 125 MILLIGRAM, BID (WEEK 4)
  18. EPIDIOLEX [Suspect]
     Active Substance: CANNABIDIOL
     Dosage: DOUBLING THE DOSE
     Route: 048
     Dates: start: 2020, end: 20200916
  19. ONFI [Concomitant]
     Active Substance: CLOBAZAM
     Dosage: 20 MILLIGRAM, TID (TAPER ON WEEK 1)
     Route: 065
  20. FYCOMPA [Concomitant]
     Active Substance: PERAMPANEL
     Indication: PRODUCT USED FOR UNKNOWN INDICATION
     Dosage: 1 TABLET, QD (AT NIGHT), STRENGTH: 2 MG
     Route: 048
  21. TOPAMAX [Concomitant]
     Active Substance: TOPIRAMATE
     Indication: PRODUCT USED FOR UNKNOWN INDICATION
     Dosage: 50 MILLIGRAM, BID (WEEK 1)
     Dates: start: 20200714
  22. TOPAMAX [Concomitant]
     Active Substance: TOPIRAMATE
     Dosage: 100 MILLIGRAM, BID (WEEK 3)
  23. TOPAMAX [Concomitant]
     Active Substance: TOPIRAMATE
     Dosage: 150 MILLIGRAM, BID (WEEK 5) THEREAFTER
  24. DULCOLAX (BISACODYL) [Concomitant]
     Active Substance: BISACODYL
     Indication: PRODUCT USED FOR UNKNOWN INDICATION
     Dosage: 10 MILLIGRAM, QD, AS NEEDED
     Route: 054
  25. DIASTAT ACUDIAL [Concomitant]
     Active Substance: DIAZEPAM
     Indication: SEIZURE
     Dosage: INCREASE DIASTAT SIZE TO 15 MG PR PRN
     Route: 065
  26. ONFI [Concomitant]
     Active Substance: CLOBAZAM
     Dosage: 2 MG/KG/DAY, 3 AM 3PM 3HS
     Route: 065
  27. PREDNISONE. [Concomitant]
     Active Substance: PREDNISONE
     Dosage: 15 MILLILITER VIA GT TUBE, QOD AT 17:00
  28. FYCOMPA [Concomitant]
     Active Substance: PERAMPANEL
     Dosage: 8 MILLIGRAM, QD (AT NIGHT), STRENGTH: 4 MG
     Route: 048
  29. TOPAMAX [Concomitant]
     Active Substance: TOPIRAMATE
     Dosage: 75 MILLIGRAM, BID (WEEK 2)
  30. CLONAZEPAM. [Concomitant]
     Active Substance: CLONAZEPAM
     Dosage: 0.02 MG/KG/DAY, 0.5 MILLIGRAM BID (0.125 MG TABLETS)
     Route: 065
  31. PROVENTIL [Concomitant]
     Active Substance: ALBUTEROL
     Indication: PRODUCT USED FOR UNKNOWN INDICATION
     Dosage: 2.5 MILLIGRAM, TID (AS NEEDED), 0.083%
  32. VENTOLIN [Concomitant]
     Active Substance: ALBUTEROL SULFATE
     Indication: PRODUCT USED FOR UNKNOWN INDICATION
     Dosage: 2.5 MILLIGRAM, TID (AS NEEDED), 0.083%
  33. LOTRIMIN [Concomitant]
     Active Substance: CLOTRIMAZOLE
     Indication: PRODUCT USED FOR UNKNOWN INDICATION
     Dosage: APPLY TO AFFECTED AREA ONCE DAILY AS NEEDED
     Route: 061
  34. DESENEX [CLOTRIMAZOLE] [Concomitant]
     Indication: PRODUCT USED FOR UNKNOWN INDICATION
     Dosage: APPLY TO AFFECTED AREA ONCE DAILY AS NEEDED
     Route: 061
  35. ONFI [Concomitant]
     Active Substance: CLOBAZAM
     Indication: PRODUCT USED FOR UNKNOWN INDICATION
     Dosage: 4 TABLETS IN AM, 2 TABLETS IN PM AND 4 TABLETS AT NIGHT VIA GT TUBE
  36. PREDNISONE. [Concomitant]
     Active Substance: PREDNISONE
     Indication: PRODUCT USED FOR UNKNOWN INDICATION
     Dosage: 15 MILLIGRAM, QOD
     Route: 048
  37. VITAMIN A + D [Concomitant]
     Active Substance: ERGOCALCIFEROL\RETINOL
     Indication: PRODUCT USED FOR UNKNOWN INDICATION
     Dosage: APPLY TO AFFECTED AREA ONCE DAILY AS NEEDED
     Route: 061
  38. EPIDIOLEX [Suspect]
     Active Substance: CANNABIDIOL
     Indication: EPILEPSY
     Dosage: 4.8 MG/KG/DAY, 110 MILLIGRAM, BID
     Route: 048
     Dates: start: 20200806, end: 202008
  39. TOPAMAX [Concomitant]
     Active Substance: TOPIRAMATE
     Dosage: 3.5 MG/KG/DAY, 75 MILLIGRAM, BID
     Route: 065
  40. LIORESAL [Concomitant]
     Active Substance: BACLOFEN
     Indication: PRODUCT USED FOR UNKNOWN INDICATION
     Dosage: 1 TABLET, TID VIA GT TUBE
  41. KLONOPIN [Concomitant]
     Active Substance: CLONAZEPAM
     Indication: SEIZURE
     Dosage: 4 DOSAGE FORM, PRN
     Route: 048
  42. BACTROBAN [Concomitant]
     Active Substance: MUPIROCIN\MUPIROCIN CALCIUM
     Indication: PRODUCT USED FOR UNKNOWN INDICATION
     Dosage: APPLY TO AFFECTED AREA 4 TIMES DAILY AS NEEDED
     Route: 061
  43. PHENOBARBITAL. [Concomitant]
     Active Substance: PHENOBARBITAL
     Indication: PRODUCT USED FOR UNKNOWN INDICATION
     Dosage: 2.7 MG/KG/DAY, 60 MILLIGRAM, BID
     Route: 065
     Dates: start: 20200714
  44. DIASTAT ACUDIAL [Concomitant]
     Active Substance: DIAZEPAM
     Indication: SEIZURE CLUSTER

REACTIONS (7)
  - Vitamin B12 increased [Unknown]
  - Somnolence [Unknown]
  - Heart rate decreased [Unknown]
  - Product use in unapproved indication [Unknown]
  - Body temperature decreased [Recovered/Resolved]
  - Seizure [Unknown]
  - Respiratory rate decreased [Unknown]

NARRATIVE: CASE EVENT DATE: 20200915
